FAERS Safety Report 5893983-4 (Version None)
Quarter: 2008Q3

REPORT INFORMATION
  Report Type: 
  Country: None (occurrence: None)
  Receive Date: 20080923
  Receipt Date: 20080905
  Transmission Date: 20090109
  Serious: No
  Sender: FDA-Public Use
  Company Number: US-B.I. PHARMACEUTICALS,INC./RIDGEFIELD-2008-BP-11046BP

PATIENT
  Age: 54 Year
  Sex: Male

DRUGS (2)
  1. FLOMAX [Suspect]
     Dosage: .4MG
  2. NORVASC [Suspect]

REACTIONS (3)
  - HYPOTENSION [None]
  - SYNCOPE [None]
  - SYNCOPE VASOVAGAL [None]
